FAERS Safety Report 9380794 (Version 1)
Quarter: 2013Q3

REPORT INFORMATION
  Report Type: Spontaneous
  Country: US (occurrence: US)
  Receive Date: 20130702
  Receipt Date: 20130702
  Transmission Date: 20140515
  Serious: Yes (Other)
  Sender: FDA-Public Use
  Company Number: US-ELI_LILLY_AND_COMPANY-US201306007871

PATIENT
  Age: 69 Year
  Sex: Female

DRUGS (1)
  1. HUMALOG LISPRO [Suspect]
     Indication: TYPE 1 DIABETES MELLITUS

REACTIONS (11)
  - Breast mass [Unknown]
  - Blood glucose increased [Unknown]
  - Back disorder [Unknown]
  - Nerve compression [Unknown]
  - Intervertebral disc protrusion [Unknown]
  - Arthropod bite [Unknown]
  - Neuropathy peripheral [Unknown]
  - Impaired gastric emptying [Unknown]
  - Nausea [Unknown]
  - Thirst [Unknown]
  - Blood glucose decreased [Unknown]
